FAERS Safety Report 8492395-7 (Version None)
Quarter: 2012Q3

REPORT INFORMATION
  Report Type: 
  Country: None (occurrence: None)
  Receive Date: 20120706
  Receipt Date: 20120627
  Transmission Date: 20120928
  Serious: Yes (Hospitalization, Other)
  Sender: FDA-Public Use
  Company Number: JP-ROCHE-789746

PATIENT
  Age: 60 Year
  Sex: Male
  Weight: 49 kg

DRUGS (3)
  1. AVASTIN [Suspect]
     Indication: LUNG ADENOCARCINOMA METASTATIC
     Route: 042
  2. CARBOPLATIN [Concomitant]
     Route: 041
  3. ALIMTA [Concomitant]
     Route: 042

REACTIONS (3)
  - SMALL INTESTINE ULCER [None]
  - SMALL INTESTINAL PERFORATION [None]
  - PERITONITIS [None]
